FAERS Safety Report 12381916 (Version 1)
Quarter: 2016Q2

REPORT INFORMATION
  Report Type: Spontaneous
  Country: US (occurrence: None)
  Receive Date: 20160517
  Receipt Date: 20160517
  Transmission Date: 20160815
  Serious: Yes (Hospitalization)
  Sender: FDA-Public Use
  Company Number: None

PATIENT
  Age: 77 Year
  Sex: Female
  Weight: 116 kg

DRUGS (1)
  1. OPDIVO [Suspect]
     Active Substance: NIVOLUMAB
     Indication: LUNG ADENOCARCINOMA
     Dosage: INTRAVENOUS (NOT OTHERWISE SPECIFIED)
     Route: 042
     Dates: start: 20150806, end: 20151119

REACTIONS (7)
  - Sinus node dysfunction [None]
  - Hypothyroidism [None]
  - Dizziness [None]
  - Dyspnoea [None]
  - Abdominal pain [None]
  - Autoimmune thyroiditis [None]
  - Constipation [None]

NARRATIVE: CASE EVENT DATE: 20160510
